FAERS Safety Report 24686618 (Version 1)
Quarter: 2024Q4

REPORT INFORMATION
  Report Type: Spontaneous
  Country: CA (occurrence: CA)
  Receive Date: 20241202
  Receipt Date: 20241202
  Transmission Date: 20250115
  Serious: Yes (Other)
  Sender: PFIZER
  Company Number: CA-PFIZER INC-202400312230

PATIENT
  Age: 30 Month
  Sex: Female
  Weight: 14 kg

DRUGS (1)
  1. EUCRISA [Suspect]
     Active Substance: CRISABOROLE
     Indication: Eczema
     Dosage: 1 DF ONCE
     Route: 061

REACTIONS (6)
  - Pruritus [Recovered/Resolved with Sequelae]
  - Rash erythematous [Recovered/Resolved with Sequelae]
  - Sensitive skin [Recovered/Resolved with Sequelae]
  - Swelling face [Recovered/Resolved with Sequelae]
  - Urticaria [Recovered/Resolved with Sequelae]
  - Vomiting [Recovered/Resolved with Sequelae]
